FAERS Safety Report 14794785 (Version 1)
Quarter: 2018Q2

REPORT INFORMATION
  Report Type: Report from Study
  Country: US (occurrence: US)
  Receive Date: 20180423
  Receipt Date: 20180423
  Transmission Date: 20180711
  Serious: Yes (Other)
  Sender: FDA-Public Use
  Company Number: US-ASTELLAS-2018US019279

PATIENT

DRUGS (2)
  1. ERLOTINIB [Suspect]
     Active Substance: ERLOTINIB
     Indication: NON-SMALL CELL LUNG CANCER METASTATIC
     Route: 048
  2. TIVANTINIB [Suspect]
     Active Substance: TIVANTINIB
     Indication: NON-SMALL CELL LUNG CANCER METASTATIC
     Route: 048

REACTIONS (6)
  - Vomiting [Unknown]
  - Nausea [Unknown]
  - Anaemia [Unknown]
  - Lymphopenia [Unknown]
  - Neutropenia [Unknown]
  - Fatigue [Unknown]
